FAERS Safety Report 25002408 (Version 1)
Quarter: 2025Q1

REPORT INFORMATION
  Report Type: Spontaneous
  Country: IN (occurrence: IN)
  Receive Date: 20250224
  Receipt Date: 20250224
  Transmission Date: 20250409
  Serious: Yes (Life-Threatening, Hospitalization)
  Sender: JUBILANT
  Company Number: None

PATIENT
  Age: 65 Year
  Sex: Male

DRUGS (8)
  1. OLANZAPINE [Suspect]
     Active Substance: OLANZAPINE
     Indication: Mania
     Dosage: 5 MG, ONCE PER DAY (AT NIGHT TIME)
     Route: 065
  2. OLANZAPINE [Suspect]
     Active Substance: OLANZAPINE
     Dosage: 10 MG, ONCE PER DAY (DOSE INCREASED)
     Route: 065
  3. OXCARBAZEPINE [Suspect]
     Active Substance: OXCARBAZEPINE
     Indication: Bipolar disorder
     Dosage: 600 MG, ONCE PER DAY
     Route: 065
  4. OXCARBAZEPINE [Suspect]
     Active Substance: OXCARBAZEPINE
     Indication: Mania
  5. OXCARBAZEPINE [Suspect]
     Active Substance: OXCARBAZEPINE
     Indication: Psychotic symptom
  6. LORAZEPAM [Suspect]
     Active Substance: LORAZEPAM
     Indication: Mania
     Dosage: 2 MG, ONCE PER DAY (AT NIGHT TIME)
     Route: 065
  7. AMLODIPINE [Concomitant]
     Active Substance: AMLODIPINE BESYLATE
     Indication: Essential hypertension
     Dosage: 5 MG, ONCE PER DAY (IN THE MORNING)
     Route: 048
     Dates: start: 2012
  8. ATENOLOL [Concomitant]
     Active Substance: ATENOLOL
     Indication: Essential hypertension
     Dosage: 25 MG, ONCE PER DAY (IN THE MORNING)
     Route: 048
     Dates: start: 2012

REACTIONS (2)
  - Ammonia increased [Recovering/Resolving]
  - Blood creatine phosphokinase increased [Recovering/Resolving]
